FAERS Safety Report 25566284 (Version 2)
Quarter: 2025Q3

REPORT INFORMATION
  Report Type: Spontaneous
  Country: RS (occurrence: RS)
  Receive Date: 20250716
  Receipt Date: 20250807
  Transmission Date: 20251021
  Serious: Yes (Death, Other)
  Sender: SANOFI AVENTIS
  Company Number: RS-SA-2025SA198894

PATIENT
  Age: 8 Year
  Sex: Female

DRUGS (1)
  1. CEREZYME [Suspect]
     Active Substance: IMIGLUCERASE
     Indication: Gaucher^s disease
     Dosage: 800 U, BIM
     Route: 042
     Dates: end: 20250519

REACTIONS (4)
  - Cardiac failure [Fatal]
  - Disease progression [Fatal]
  - Multiple organ dysfunction syndrome [Unknown]
  - General physical health deterioration [Unknown]
